FAERS Safety Report 9922418 (Version 1)
Quarter: 2014Q1

REPORT INFORMATION
  Report Type: Spontaneous
  Country: IT (occurrence: IT)
  Receive Date: 20140225
  Receipt Date: 20140225
  Transmission Date: 20141002
  Serious: Yes (Other)
  Sender: FDA-Public Use
  Company Number: IT-TEVA-462660ISR

PATIENT
  Age: 54 Year
  Sex: Female

DRUGS (1)
  1. CEFTRIAXONE DISODIUM [Suspect]
     Indication: PRODUCT USED FOR UNKNOWN INDICATION
     Dosage: 1 DF TOTAL
     Route: 030
     Dates: start: 20131213, end: 20131213

REACTIONS (3)
  - Pharyngeal oedema [Recovering/Resolving]
  - Erythema [Recovering/Resolving]
  - Pruritus [Recovering/Resolving]
